FAERS Safety Report 7307931-3 (Version None)
Quarter: 2011Q1

REPORT INFORMATION
  Report Type: 
  Country: None (occurrence: None)
  Receive Date: 20110209
  Receipt Date: 20110124
  Transmission Date: 20110831
  Serious: Yes (Death)
  Sender: FDA-Public Use
  Company Number: 2011S1000085

PATIENT
  Age: 20 Year
  Sex: Male

DRUGS (1)
  1. ORAMORPH SR [Suspect]
     Dosage: PO
     Route: 048
     Dates: end: 20090101

REACTIONS (12)
  - HYPOTENSION [None]
  - RENAL FAILURE [None]
  - BRONCHOPNEUMONIA [None]
  - HYPOXIC-ISCHAEMIC ENCEPHALOPATHY [None]
  - INCORRECT DOSE ADMINISTERED [None]
  - CARDIAC ARREST [None]
  - HAEMODIALYSIS [None]
  - COMPLETED SUICIDE [None]
  - CONVULSION [None]
  - PULSELESS ELECTRICAL ACTIVITY [None]
  - RESPIRATORY ARREST [None]
  - HAEMODYNAMIC INSTABILITY [None]
